FAERS Safety Report 13588518 (Version 1)
Quarter: 2017Q2

REPORT INFORMATION
  Report Type: Spontaneous
  Country: US (occurrence: US)
  Receive Date: 20170529
  Receipt Date: 20170529
  Transmission Date: 20170830
  Serious: No
  Sender: FDA-Public Use
  Company Number: US-BAYER-2017-100102

PATIENT
  Age: 25 Year
  Sex: Female

DRUGS (1)
  1. KYLEENA [Suspect]
     Active Substance: LEVONORGESTREL
     Indication: CONTRACEPTION
     Dosage: 12.5 MCG/24HR, CONT
     Route: 015
     Dates: start: 20170207, end: 20170513

REACTIONS (1)
  - Device expulsion [None]

NARRATIVE: CASE EVENT DATE: 20170513
